FAERS Safety Report 8612762-8 (Version None)
Quarter: 2012Q3

REPORT INFORMATION
  Report Type: 
  Country: None (occurrence: None)
  Receive Date: 20120822
  Receipt Date: 20110831
  Transmission Date: 20120928
  Serious: No
  Sender: FDA-Public Use
  Company Number: US-ASTRAZENECA-2011SE52242

PATIENT
  Sex: Female

DRUGS (1)
  1. SYMBICORT [Suspect]
     Dosage: 160/4.5
     Route: 055

REACTIONS (6)
  - DYSPHAGIA [None]
  - PHARYNGEAL INFLAMMATION [None]
  - STOMATITIS [None]
  - INFLAMMATION [None]
  - GLOSSITIS [None]
  - PAIN [None]
